FAERS Safety Report 9523236 (Version 1)
Quarter: 2013Q3

REPORT INFORMATION
  Report Type: Spontaneous
  Country: FR (occurrence: FR)
  Receive Date: 20130913
  Receipt Date: 20130913
  Transmission Date: 20140515
  Serious: Yes (Other)
  Sender: FDA-Public Use
  Company Number: PHHY2013FR101134

PATIENT
  Age: 74 Year
  Sex: Female

DRUGS (1)
  1. ACLASTA [Suspect]
     Indication: OSTEONECROSIS
     Dosage: 5 MG ONCE A YEAR
     Route: 042
     Dates: end: 2011

REACTIONS (1)
  - Gingivitis ulcerative [Not Recovered/Not Resolved]
